FAERS Safety Report 14817476 (Version 3)
Quarter: 2019Q1

REPORT INFORMATION
  Report Type: Report from Study
  Country: NL (occurrence: NL)
  Receive Date: 20180426
  Receipt Date: 20190125
  Transmission Date: 20190417
  Serious: Yes (Other)
  Sender: FDA-Public Use
  Company Number: NL-GLAXOSMITHKLINE-NL2018068255

PATIENT
  Age: 51 Year
  Sex: Female

DRUGS (4)
  1. IBUPROFEN. [Suspect]
     Active Substance: IBUPROFEN
     Indication: MASTOCYTOSIS
     Dosage: UNK
     Route: 065
  2. DICLOFENAC [Suspect]
     Active Substance: DICLOFENAC
     Indication: ANALGESIC INTERVENTION SUPPORTIVE THERAPY
  3. IBUPROFEN. [Suspect]
     Active Substance: IBUPROFEN
     Indication: ANALGESIC INTERVENTION SUPPORTIVE THERAPY
  4. DICLOFENAC [Suspect]
     Active Substance: DICLOFENAC
     Indication: MASTOCYTOSIS
     Dosage: UNK
     Route: 065

REACTIONS (4)
  - Palpitations [Unknown]
  - Drug hypersensitivity [Unknown]
  - Angioedema [Unknown]
  - Circulatory collapse [Unknown]
